FAERS Safety Report 4764013-2 (Version None)
Quarter: 2005Q3

REPORT INFORMATION
  Report Type: 
  Country: None (occurrence: None)
  Receive Date: 20050906
  Receipt Date: 20050822
  Transmission Date: 20060218
  Serious: Yes (Other)
  Sender: FDA-Public Use
  Company Number: 2005118277

PATIENT
  Sex: Female
  Weight: 61.2356 kg

DRUGS (2)
  1. ZYRTEC [Suspect]
     Indication: MULTIPLE ALLERGIES
     Dosage: 10 MG (10 MG, 1 IN 1 D), ORAL
     Route: 048
  2. SUDAFED 12 HOUR [Suspect]
     Indication: ILL-DEFINED DISORDER

REACTIONS (3)
  - DRY THROAT [None]
  - PHARYNGEAL OEDEMA [None]
  - SJOGREN'S SYNDROME [None]
